FAERS Safety Report 6912459-6 (Version None)
Quarter: 2010Q3

REPORT INFORMATION
  Report Type: 
  Country: None (occurrence: None)
  Receive Date: 20100806
  Receipt Date: 20080527
  Transmission Date: 20110219
  Serious: No
  Sender: FDA-Public Use
  Company Number: US-PFIZER INC-2008030471

PATIENT
  Sex: Male
  Weight: 77.2 kg

DRUGS (5)
  1. DILANTIN [Suspect]
     Indication: CONVULSION
     Route: 048
     Dates: start: 20050601
  2. COLCHICINE [Concomitant]
  3. ENALAPRIL [Concomitant]
  4. DOXAZOSIN [Concomitant]
  5. ENALAPRIL MALEATE [Concomitant]

REACTIONS (4)
  - DYSSTASIA [None]
  - ERYTHEMA [None]
  - HYPERSENSITIVITY [None]
  - RASH GENERALISED [None]
